FAERS Safety Report 5138071-X (Version None)
Quarter: 2006Q4

REPORT INFORMATION
  Report Type: 
  Country: None (occurrence: None)
  Receive Date: 20061030
  Receipt Date: 20060411
  Transmission Date: 20070319
  Serious: Yes (Other)
  Sender: FDA-Public Use
  Company Number: US-GLAXOSMITHKLINE-A0601362A

PATIENT
  Age: 64 Year
  Sex: Male

DRUGS (8)
  1. ADVAIR HFA [Suspect]
     Indication: ASTHMA
     Route: 055
     Dates: start: 20030701
  2. CRESTOR [Concomitant]
  3. ALTACE [Concomitant]
  4. ZETIA [Concomitant]
  5. NEXIUM [Concomitant]
  6. MOBIC [Concomitant]
  7. FOLIC ACID [Concomitant]
  8. OMACOR [Concomitant]

REACTIONS (2)
  - CHOKING [None]
  - PHARMACEUTICAL PRODUCT COMPLAINT [None]
